FAERS Safety Report 5860699-X (Version None)
Quarter: 2008Q3

REPORT INFORMATION
  Report Type: 
  Country: None (occurrence: None)
  Receive Date: 20080827
  Receipt Date: 20071022
  Transmission Date: 20090109
  Serious: No
  Sender: FDA-Public Use
  Company Number: US-ABBOTT-07P-163-0422112-00

PATIENT
  Age: 58 Year
  Sex: Male

DRUGS (3)
  1. NIASPAN [Suspect]
     Indication: BLOOD TRIGLYCERIDES INCREASED
     Route: 048
     Dates: start: 20070901, end: 20071015
  2. NIASPAN [Suspect]
     Indication: HIGH DENSITY LIPOPROTEIN INCREASED
  3. LOTREL [Concomitant]
     Indication: HYPERTENSION
     Route: 048

REACTIONS (1)
  - FLUID RETENTION [None]
